FAERS Safety Report 5776618-0 (Version None)
Quarter: 2008Q2

REPORT INFORMATION
  Report Type: 
  Country: None (occurrence: None)
  Receive Date: 20080616
  Receipt Date: 20080602
  Transmission Date: 20081010
  Serious: Yes (Death, Hospitalization)
  Sender: FDA-Public Use
  Company Number: 2008BM000088

PATIENT
  Age: 12 Year
  Sex: Male
  Weight: 18 kg

DRUGS (5)
  1. NAGLAZYME [Suspect]
     Indication: MUCOPOLYSACCHARIDOSIS VI
     Dosage: 20 MG; QW; IV
     Route: 042
     Dates: start: 20071130, end: 20080407
  2. ALDACTONE [Concomitant]
  3. FUROSEMIDE /00032602/ [Concomitant]
  4. SILDENAFIL /01367502/ [Concomitant]
  5. CARVEDILOL [Concomitant]

REACTIONS (9)
  - BRONCHIAL OBSTRUCTION [None]
  - CARDIAC FAILURE [None]
  - CARDIO-RESPIRATORY ARREST [None]
  - CARDIOMYOPATHY [None]
  - DISEASE PROGRESSION [None]
  - MUCOPOLYSACCHARIDOSIS VI [None]
  - MULTI-ORGAN FAILURE [None]
  - PULMONARY HYPERTENSION [None]
  - RENAL FAILURE [None]
